FAERS Safety Report 5865147-1 (Version None)
Quarter: 2008Q3

REPORT INFORMATION
  Report Type: 
  Country: None (occurrence: None)
  Receive Date: 20080829
  Receipt Date: 20080821
  Transmission Date: 20090109
  Serious: Yes (Other)
  Sender: FDA-Public Use
  Company Number: A0745039A

PATIENT
  Age: 49 Year
  Sex: Male

DRUGS (12)
  1. EPZICOM [Suspect]
     Indication: HIV INFECTION
     Dosage: 1TAB PER DAY
     Route: 048
     Dates: start: 20050301
  2. NORVIR [Concomitant]
  3. REYATAZ [Concomitant]
  4. BACTRIM [Concomitant]
  5. JANUVIA [Concomitant]
  6. ACTOS [Concomitant]
  7. ANTARA [Concomitant]
  8. SYMBICORT [Concomitant]
  9. XOPENEX [Concomitant]
  10. ATIVAN [Concomitant]
  11. TRAZODONE HCL [Concomitant]
  12. ANDROGEL [Concomitant]

REACTIONS (13)
  - ALANINE AMINOTRANSFERASE INCREASED [None]
  - ASPARTATE AMINOTRANSFERASE INCREASED [None]
  - ASTHENIA [None]
  - BLOOD BILIRUBIN INCREASED [None]
  - C-REACTIVE PROTEIN INCREASED [None]
  - FATIGUE [None]
  - HAEMOGLOBIN DECREASED [None]
  - HYPERSENSITIVITY [None]
  - LETHARGY [None]
  - MYALGIA [None]
  - PYREXIA [None]
  - RED BLOOD CELL SEDIMENTATION RATE INCREASED [None]
  - WHITE BLOOD CELL COUNT DECREASED [None]
